FAERS Safety Report 8134905-5 (Version None)
Quarter: 2012Q1

REPORT INFORMATION
  Report Type: 
  Country: None (occurrence: None)
  Receive Date: 20120214
  Receipt Date: 20120207
  Transmission Date: 20120608
  Serious: Yes (Other)
  Sender: FDA-Public Use
  Company Number: US-AMGEN-USASP2012008492

PATIENT
  Age: 54 Year
  Sex: Male
  Weight: 77.098 kg

DRUGS (9)
  1. PROCRIT [Suspect]
     Dosage: 40000 IU, QWK
     Route: 058
     Dates: start: 20100201, end: 20100301
  2. PROCRIT [Suspect]
     Indication: PRODUCT USED FOR UNKNOWN INDICATION
     Dosage: 20000 IU, QWK
     Route: 058
     Dates: start: 20090301, end: 20100101
  3. PROCRIT [Suspect]
     Dosage: 30000 IU, QWK
     Dates: start: 20100101, end: 20100201
  4. PROCRIT [Suspect]
     Dosage: 50000 IU, QWK
     Route: 058
     Dates: start: 20100301, end: 20110101
  5. PROCRIT [Suspect]
     Dosage: 10000 IU, QWK
     Route: 058
     Dates: start: 20110101, end: 20111101
  6. PROGRAF [Concomitant]
     Indication: TRANSPLANT
     Dosage: 2 MG, BID
     Route: 048
     Dates: start: 20040201, end: 20111101
  7. PROCRIT [Suspect]
     Dosage: 20000 IU, QWK
     Route: 058
     Dates: start: 20120101
  8. MYCOPHENOLATE MOFETIL (CELLCEPT) [Concomitant]
     Indication: TRANSPLANT
     Dosage: 500 MG, BID
     Route: 048
     Dates: start: 20040201, end: 20110501
  9. PREDNISONE TAB [Concomitant]
     Indication: TRANSPLANT
     Dosage: 5 MG, BID
     Route: 048
     Dates: start: 20040201

REACTIONS (5)
  - APLASIA PURE RED CELL [None]
  - DRUG LEVEL INCREASED [None]
  - VIRAL TEST POSITIVE [None]
  - TRANSFUSION [None]
  - BLOOD COUNT ABNORMAL [None]
